FAERS Safety Report 8021259-8 (Version None)
Quarter: 2011Q4

REPORT INFORMATION
  Report Type: 
  Country: None (occurrence: None)
  Receive Date: 20111230
  Receipt Date: 20111230
  Transmission Date: 20120403
  Serious: Yes (Hospitalization)
  Sender: FDA-Public Use
  Company Number: None

PATIENT
  Age: 75 Year
  Sex: Male
  Weight: 93.6 kg

DRUGS (2)
  1. CEFDINIR [Suspect]
     Indication: URINARY TRACT INFECTION
     Dosage: 300 MG BID PO
     Route: 048
     Dates: start: 20110824, end: 20110826
  2. LISINOPRIL [Suspect]
     Indication: HYPERTENSION
     Dosage: MG EVERY DAY PO
     Route: 048
     Dates: start: 20040929

REACTIONS (1)
  - ANGIOEDEMA [None]
